FAERS Safety Report 13756010 (Version 1)
Quarter: 2017Q3

REPORT INFORMATION
  Report Type: Spontaneous
  Country: US (occurrence: US)
  Receive Date: 20170714
  Receipt Date: 20170714
  Transmission Date: 20171127
  Serious: No
  Sender: FDA-Public Use
  Company Number: US-PFIZER INC-2017300344

PATIENT
  Sex: Male

DRUGS (2)
  1. NORVASC [Suspect]
     Active Substance: AMLODIPINE BESYLATE
     Dosage: UNK
  2. CALCIUM [Suspect]
     Active Substance: CALCIUM
     Dosage: UNK

REACTIONS (2)
  - Myalgia [Unknown]
  - Vomiting [Unknown]
